FAERS Safety Report 6547043-X (Version None)
Quarter: 2010Q1

REPORT INFORMATION
  Report Type: 
  Country: None (occurrence: None)
  Receive Date: 20100122
  Receipt Date: 20090320
  Transmission Date: 20100710
  Serious: Yes (Other)
  Sender: FDA-Public Use
  Company Number: US-PFIZER INC-2009174963

PATIENT
  Sex: Male

DRUGS (5)
  1. CELEBREX [Suspect]
  2. BACLOFEN [Concomitant]
     Indication: MUSCLE SPASMS
  3. PROZAC [Concomitant]
     Indication: DEPRESSION
  4. HYDROCODONE [Concomitant]
     Indication: PAIN
  5. MORPHINE [Concomitant]
     Indication: PAIN

REACTIONS (1)
  - DRUG SCREEN FALSE POSITIVE [None]
